FAERS Safety Report 8078419-X (Version None)
Quarter: 2012Q1

REPORT INFORMATION
  Report Type: 
  Country: None (occurrence: None)
  Receive Date: 20120123
  Receipt Date: 20120105
  Transmission Date: 20120608
  Serious: Yes (Other)
  Sender: FDA-Public Use
  Company Number: 1156982

PATIENT
  Age: 43 Year
  Sex: Female

DRUGS (6)
  1. (THERAPEUTIC RADIOPHARMACEUTICALS) [Suspect]
     Indication: BREAST CANCER
  2. (PALONOSETRON) [Concomitant]
  3. DOCETAXEL [Suspect]
     Indication: BREAST CANCER
     Dosage: 75 MG/M^2
  4. CYCLOPHOSPHAMIDE [Suspect]
     Indication: BREAST CANCER
     Dosage: 600 MG/M^2
  5. APREPITANT [Concomitant]
  6. DEXAMETHASONE [Concomitant]

REACTIONS (3)
  - SUNBURN [None]
  - RECALL PHENOMENON [None]
  - URTICARIA [None]
